FAERS Safety Report 18070455 (Version 1)
Quarter: 2020Q3

REPORT INFORMATION
  Report Type: Spontaneous
  Country: IT (occurrence: IT)
  Receive Date: 20200727
  Receipt Date: 20200727
  Transmission Date: 20201103
  Serious: Yes (Other)
  Sender: FDA-Public Use
  Company Number: IT-TEVA-2020-IT-1804973

PATIENT
  Age: 62 Year
  Sex: Female

DRUGS (2)
  1. VENLAFAXINE [Suspect]
     Active Substance: VENLAFAXINE HYDROCHLORIDE
     Indication: PERSONALITY DISORDER
     Dosage: 37.5 MG
     Route: 048
  2. XANAX [Interacting]
     Active Substance: ALPRAZOLAM
     Indication: PERSONALITY DISORDER
     Dosage: 0.25 MG
     Route: 048

REACTIONS (2)
  - Alcohol interaction [Recovered/Resolved]
  - Feeling jittery [Recovered/Resolved]

NARRATIVE: CASE EVENT DATE: 20200620
